FAERS Safety Report 14595865 (Version 4)
Quarter: 2018Q3

REPORT INFORMATION
  Report Type: Spontaneous
  Country: US (occurrence: US)
  Receive Date: 20180303
  Receipt Date: 20180705
  Transmission Date: 20181010
  Serious: Yes (Other)
  Sender: FDA-Public Use
  Company Number: PHEH2018US008691

PATIENT
  Sex: Female

DRUGS (1)
  1. AFINITOR [Suspect]
     Active Substance: EVEROLIMUS
     Indication: NEUROENDOCRINE TUMOUR
     Route: 065

REACTIONS (6)
  - Loss of consciousness [Unknown]
  - Pollakiuria [Unknown]
  - Blood glucose increased [Unknown]
  - Thrombosis [Unknown]
  - Alopecia [Unknown]
  - Diarrhoea [Unknown]
